FAERS Safety Report 7451040-X (Version None)
Quarter: 2011Q2

REPORT INFORMATION
  Report Type: 
  Country: None (occurrence: None)
  Receive Date: 20110502
  Receipt Date: 20110427
  Transmission Date: 20111010
  Serious: Yes (Other)
  Sender: FDA-Public Use
  Company Number: IT-ROCHE-768743

PATIENT
  Sex: Female

DRUGS (5)
  1. ROACTEMRA [Suspect]
     Indication: RHEUMATOID ARTHRITIS
     Route: 042
     Dates: start: 20110119, end: 20110218
  2. FOSAVANCE [Concomitant]
  3. MEDROL [Concomitant]
  4. ARAVA [Concomitant]
  5. DICLOREUM [Concomitant]

REACTIONS (1)
  - ATRIAL FIBRILLATION [None]
